FAERS Safety Report 6732381-8 (Version None)
Quarter: 2010Q2

REPORT INFORMATION
  Report Type: 
  Country: None (occurrence: None)
  Receive Date: 20100519
  Receipt Date: 20100511
  Transmission Date: 20101027
  Serious: Yes (Death)
  Sender: FDA-Public Use
  Company Number: CO-ROCHE-700606

PATIENT
  Sex: Female

DRUGS (1)
  1. AVASTIN [Suspect]
     Dosage: FORM: INFUSION; FREQUENCY: Q21DAYS
     Route: 042
     Dates: start: 20100301, end: 20100323

REACTIONS (2)
  - CARDIOPULMONARY FAILURE [None]
  - DYSPNOEA [None]
